FAERS Safety Report 19587545 (Version 5)
Quarter: 2021Q3

REPORT INFORMATION
  Report Type: Report from Study
  Country: US (occurrence: US)
  Receive Date: 20210721
  Receipt Date: 20210820
  Transmission Date: 20211014
  Serious: Yes (Life-Threatening, Disabling, Other)
  Sender: FDA-Public Use
  Company Number: US-SA-2021SA236356

PATIENT
  Age: 58 Year
  Sex: Female

DRUGS (4)
  1. DESVENLAFAXINE. [Concomitant]
     Active Substance: DESVENLAFAXINE
     Dosage: UNK
     Dates: start: 20210702
  2. OXYBUTYNIN. [Suspect]
     Active Substance: OXYBUTYNIN CHLORIDE
     Dosage: UNK
     Dates: end: 20210727
  3. TERIFLUNOMIDE. [Suspect]
     Active Substance: TERIFLUNOMIDE
     Indication: MULTIPLE SCLEROSIS
     Dosage: 14 MG, QD
     Route: 048
     Dates: start: 20170830
  4. VENLAFAXINE [Concomitant]
     Active Substance: VENLAFAXINE HYDROCHLORIDE
     Dosage: UNK
     Dates: start: 20210702

REACTIONS (22)
  - Dry eye [Not Recovered/Not Resolved]
  - Taste disorder [Not Recovered/Not Resolved]
  - Condition aggravated [Unknown]
  - Colitis [Recovered/Resolved]
  - Incontinence [Unknown]
  - Cough [Not Recovered/Not Resolved]
  - Memory impairment [Unknown]
  - Memory impairment [Not Recovered/Not Resolved]
  - Anxiety [Unknown]
  - Tooth infection [Recovered/Resolved]
  - Urinary incontinence [Unknown]
  - Confusional state [Unknown]
  - Headache [Unknown]
  - Disability [Unknown]
  - Vision blurred [Not Recovered/Not Resolved]
  - Neoplasm progression [Not Recovered/Not Resolved]
  - Feeling abnormal [Not Recovered/Not Resolved]
  - Salivary gland mass [Unknown]
  - Depression [Unknown]
  - Dry mouth [Recovered/Resolved]
  - Gingival disorder [Not Recovered/Not Resolved]
  - Diarrhoea [Recovered/Resolved]

NARRATIVE: CASE EVENT DATE: 2017
